FAERS Safety Report 14625835 (Version 1)
Quarter: 2018Q1

REPORT INFORMATION
  Report Type: Spontaneous
  Country: TW (occurrence: TW)
  Receive Date: 20180312
  Receipt Date: 20180312
  Transmission Date: 20180509
  Serious: Yes (Death, Hospitalization, Other)
  Sender: FDA-Public Use
  Company Number: TW-MYLANLABS-2018M1015007

PATIENT
  Age: 65 Year
  Sex: Male

DRUGS (6)
  1. PREDNISOLONE. [Suspect]
     Active Substance: PREDNISOLONE
     Indication: LATENT TUBERCULOSIS
     Dosage: 55MG DAILY
     Route: 065
  2. PREDNISOLONE. [Suspect]
     Active Substance: PREDNISOLONE
     Indication: PERITONITIS
     Dosage: 10MG DAILY
     Route: 048
  3. METHOTREXATE. [Suspect]
     Active Substance: METHOTREXATE
     Indication: LATENT TUBERCULOSIS
     Dosage: 7.5MG WEEKLY
     Route: 065
  4. ISONIAZID. [Concomitant]
     Active Substance: ISONIAZID
     Indication: LATENT TUBERCULOSIS
     Dosage: UNK
     Route: 065
  5. HYDROCORTISONE. [Suspect]
     Active Substance: HYDROCORTISONE
     Indication: PRODUCT USED FOR UNKNOWN INDICATION
     Dosage: 200MG
     Route: 042
  6. FLUMARIN                           /00780601/ [Concomitant]
     Indication: PERITONITIS
     Dosage: 1G/ EIGHT HOURS
     Route: 042

REACTIONS (8)
  - Abdominal wall abscess [Not Recovered/Not Resolved]
  - Enterococcal infection [Unknown]
  - Septic shock [Fatal]
  - Klebsiella infection [Unknown]
  - Alpha haemolytic streptococcal infection [Unknown]
  - Symptom masked [Not Recovered/Not Resolved]
  - Necrotising fasciitis [Fatal]
  - Cytomegalovirus infection [Unknown]
